FAERS Safety Report 4779826-0 (Version None)
Quarter: 2005Q3

REPORT INFORMATION
  Report Type: 
  Country: None (occurrence: None)
  Receive Date: 20050927
  Receipt Date: 20050921
  Transmission Date: 20060218
  Serious: Yes (Hospitalization)
  Sender: FDA-Public Use
  Company Number: FR-JNJFOC-20050904912

PATIENT
  Age: 86 Year
  Sex: Female

DRUGS (6)
  1. RISPERDAL [Suspect]
     Indication: DRUG USE FOR UNKNOWN INDICATION
     Route: 048
     Dates: end: 20050418
  2. STILNOX [Suspect]
     Indication: DRUG USE FOR UNKNOWN INDICATION
     Dates: end: 20050418
  3. LYSANXIA [Suspect]
     Indication: DRUG USE FOR UNKNOWN INDICATION
     Dates: end: 20050418
  4. CORDARONE [Concomitant]
  5. CITALOPRAM HYDROBROMIDE [Concomitant]
     Dosage: DOSE= TABLET
     Route: 048
  6. EXELON [Concomitant]
     Dosage: DOSE= TABLET
     Route: 048

REACTIONS (4)
  - AKINESIA [None]
  - FACIAL BONES FRACTURE [None]
  - FALL [None]
  - UPPER LIMB FRACTURE [None]
